FAERS Safety Report 24273520 (Version 1)
Quarter: 2024Q3

REPORT INFORMATION
  Report Type: Spontaneous
  Country: CN (occurrence: CN)
  Receive Date: 20240902
  Receipt Date: 20240902
  Transmission Date: 20241017
  Serious: Yes (Other)
  Sender: PFIZER
  Company Number: CN-PFIZER INC-PV202400111936

PATIENT
  Age: 28 Year
  Sex: Female
  Weight: 52.5 kg

DRUGS (2)
  1. EPIRUBICIN HYDROCHLORIDE [Suspect]
     Active Substance: EPIRUBICIN HYDROCHLORIDE
     Indication: Chemotherapy
     Dosage: 130.000 MG, 1X/DAY
     Route: 041
     Dates: start: 20240816, end: 20240821
  2. SODIUM CHLORIDE [Concomitant]
     Active Substance: SODIUM CHLORIDE
     Indication: Vehicle solution use
     Dosage: 100.000 ML, 1X/DAY
     Route: 041
     Dates: start: 20240816, end: 20240821

REACTIONS (1)
  - Hepatic function abnormal [Unknown]

NARRATIVE: CASE EVENT DATE: 20240818
